FAERS Safety Report 4941592-3 (Version None)
Quarter: 2006Q1

REPORT INFORMATION
  Report Type: 
  Country: None (occurrence: None)
  Receive Date: 20060313
  Receipt Date: 20060307
  Transmission Date: 20060701
  Serious: Yes (Hospitalization)
  Sender: FDA-Public Use
  Company Number: JP-AVENTIS-200610729JP

PATIENT
  Sex: Male

DRUGS (6)
  1. ALLEGRA [Suspect]
     Indication: RHINITIS ALLERGIC
     Route: 048
     Dates: start: 20060203, end: 20060216
  2. ALLEGRA [Suspect]
     Route: 048
     Dates: start: 20060217, end: 20060303
  3. NU-LOTAN [Concomitant]
  4. HARNAL [Concomitant]
  5. FLIVAS [Concomitant]
  6. UBRETID [Concomitant]

REACTIONS (3)
  - DIZZINESS [None]
  - GAIT DISTURBANCE [None]
  - NEPHROTIC SYNDROME [None]
